FAERS Safety Report 17451374 (Version 2)
Quarter: 2020Q1

REPORT INFORMATION
  Report Type: Spontaneous
  Country: US (occurrence: US)
  Receive Date: 20200224
  Receipt Date: 20200313
  Transmission Date: 20200409
  Serious: No
  Sender: FDA-Public Use
  Company Number: US-PFIZER INC-2020081228

PATIENT
  Age: 86 Year
  Sex: Female

DRUGS (1)
  1. PREGABALIN. [Suspect]
     Active Substance: PREGABALIN
     Dosage: 1 DF, 2X/DAY
     Route: 048
     Dates: start: 20180604

REACTIONS (3)
  - Nausea [Recovered/Resolved]
  - Gastric disorder [Unknown]
  - Dysphagia [Unknown]
